FAERS Safety Report 5672004-2 (Version None)
Quarter: 2008Q1

REPORT INFORMATION
  Report Type: 
  Country: None (occurrence: None)
  Receive Date: 20080317
  Receipt Date: 20080317
  Transmission Date: 20080703
  Serious: No
  Sender: FDA-Public Use
  Company Number: None

PATIENT
  Sex: Female
  Weight: 95.2554 kg

DRUGS (1)
  1. ATENOLOL [Suspect]
     Indication: HYPERTENSION
     Dosage: 50MG 1 TAB EVERY MORNIN PO
     Route: 048
     Dates: start: 20080129, end: 20080130

REACTIONS (10)
  - BACTERIAL INFECTION [None]
  - FATIGUE [None]
  - INFLUENZA [None]
  - INSOMNIA [None]
  - MALAISE [None]
  - MYALGIA [None]
  - PYREXIA [None]
  - SOMNOLENCE [None]
  - STOMACH DISCOMFORT [None]
  - VIRAL INFECTION [None]
